FAERS Safety Report 7135525-1 (Version None)
Quarter: 2010Q4

REPORT INFORMATION
  Report Type: 
  Country: None (occurrence: None)
  Receive Date: 20101203
  Receipt Date: 20101122
  Transmission Date: 20110411
  Serious: Yes (Hospitalization, Other)
  Sender: FDA-Public Use
  Company Number: CA-ELI_LILLY_AND_COMPANY-CA201009008234

PATIENT
  Age: 87 Year
  Sex: Female

DRUGS (5)
  1. FORTEO [Suspect]
     Indication: OSTEOPOROSIS
     Dosage: UNK, UNKNOWN
     Dates: start: 20071025
  2. FORTEO [Suspect]
     Dosage: 20 UG, DAILY (1/D)
     Route: 058
  3. CRESTOR [Concomitant]
  4. METFORMIN [Concomitant]
  5. METOPROLOL [Concomitant]

REACTIONS (3)
  - COLON CANCER [None]
  - INTESTINAL OBSTRUCTION [None]
  - VISUAL IMPAIRMENT [None]
